FAERS Safety Report 25622627 (Version 1)
Quarter: 2025Q3

REPORT INFORMATION
  Report Type: Spontaneous
  Country: US (occurrence: US)
  Receive Date: 20250730
  Receipt Date: 20250730
  Transmission Date: 20251020
  Serious: Yes (Other)
  Sender: VANDA PHARMACEUTICALS
  Company Number: US-VANDA PHARMACEUTICALS, INC-2025ILOUS002058

PATIENT
  Age: 52 Year
  Sex: Female

DRUGS (2)
  1. FANAPT [Suspect]
     Active Substance: ILOPERIDONE
     Indication: Product used for unknown indication
     Route: 065
  2. FANAPT [Suspect]
     Active Substance: ILOPERIDONE

REACTIONS (1)
  - Cardiac failure [Recovering/Resolving]
